FAERS Safety Report 10453855 (Version 1)
Quarter: 2014Q3

REPORT INFORMATION
  Report Type: Spontaneous
  Country: US (occurrence: US)
  Receive Date: 20140915
  Receipt Date: 20140915
  Transmission Date: 20150326
  Serious: No
  Sender: FDA-Public Use
  Company Number: US-BRISTOL-MYERS SQUIBB COMPANY-21312335

PATIENT
  Age: 77 Year
  Sex: Female

DRUGS (12)
  1. ARTHROTEC [Concomitant]
     Active Substance: DICLOFENAC SODIUM\MISOPROSTOL
  2. ATORVASTATIN [Concomitant]
     Active Substance: ATORVASTATIN
  3. OXYGEN. [Concomitant]
     Active Substance: OXYGEN
  4. VENTOLIN [Concomitant]
     Active Substance: ALBUTEROL SULFATE
  5. ELIQUIS [Suspect]
     Active Substance: APIXABAN
     Indication: CEREBROVASCULAR ACCIDENT PROPHYLAXIS
     Dates: start: 201402
  6. MORPHINE [Concomitant]
     Active Substance: MORPHINE
  7. JANUVIA [Concomitant]
     Active Substance: SITAGLIPTIN PHOSPHATE
  8. LOVASTATIN. [Concomitant]
     Active Substance: LOVASTATIN
  9. MONTELUKAST [Concomitant]
     Active Substance: MONTELUKAST SODIUM
  10. LYRICA [Concomitant]
     Active Substance: PREGABALIN
  11. PREDNISONE. [Concomitant]
     Active Substance: PREDNISONE
  12. HYDROCODONE [Concomitant]
     Active Substance: HYDROCODONE

REACTIONS (1)
  - Rheumatoid arthritis [Unknown]

NARRATIVE: CASE EVENT DATE: 2014
